FAERS Safety Report 6969429-1 (Version None)
Quarter: 2010Q3

REPORT INFORMATION
  Report Type: 
  Country: None (occurrence: None)
  Receive Date: 20100907
  Receipt Date: 20100830
  Transmission Date: 20110219
  Serious: Yes (Hospitalization, Other)
  Sender: FDA-Public Use
  Company Number: US-AMGEN-KDL434636

PATIENT
  Sex: Female

DRUGS (2)
  1. PROLIA [Suspect]
     Indication: OSTEOPOROSIS POSTMENOPAUSAL
     Dates: start: 20100727
  2. FOSAMAX [Concomitant]

REACTIONS (6)
  - ARTHRALGIA [None]
  - DEPRESSION [None]
  - GROIN PAIN [None]
  - HIP FRACTURE [None]
  - LIGAMENT DISORDER [None]
  - POLYMYOSITIS [None]
